FAERS Safety Report 4777388-5 (Version None)
Quarter: 2005Q3

REPORT INFORMATION
  Report Type: 
  Country: None (occurrence: None)
  Receive Date: 20050923
  Receipt Date: 20050915
  Transmission Date: 20060218
  Serious: Yes (Hospitalization)
  Sender: FDA-Public Use
  Company Number: PHRM2005FR02464

PATIENT
  Age: 14 Year
  Sex: Male
  Weight: 36 kg

DRUGS (4)
  1. CORTANCYL [Suspect]
     Dosage: 50 MG, QOD
     Route: 048
     Dates: start: 19940101
  2. CIFLOX [Suspect]
     Indication: ANTIBIOTIC PROPHYLAXIS
     Dosage: 250 MG, TID
     Route: 048
     Dates: start: 20010101
  3. NEORAL [Suspect]
     Indication: LIVER TRANSPLANT
     Dosage: 60 MG, BID
     Route: 048
     Dates: start: 20000101, end: 20010101
  4. NEORAL [Suspect]
     Dosage: 40 MG, BID
     Route: 048
     Dates: start: 20010101

REACTIONS (8)
  - AGITATION [None]
  - AMMONIA INCREASED [None]
  - CREATININE RENAL CLEARANCE DECREASED [None]
  - DEPRESSED LEVEL OF CONSCIOUSNESS [None]
  - HEPATIC ENCEPHALOPATHY [None]
  - INCOHERENT [None]
  - INTUBATION [None]
  - SEDATIVE THERAPY [None]
